FAERS Safety Report 17789807 (Version 1)
Quarter: 2020Q2

REPORT INFORMATION
  Report Type: Spontaneous
  Country: US (occurrence: US)
  Receive Date: 20200515
  Receipt Date: 20200515
  Transmission Date: 20200714
  Serious: No
  Sender: FDA-Public Use
  Company Number: US-GW PHARMA-202005USGW01727

PATIENT

DRUGS (3)
  1. EPIDIOLEX [Suspect]
     Active Substance: CANNABIDIOL
     Indication: SEIZURE
     Dosage: 100 MILLIGRAM, QD (APPROXIMATELY 100 MILLIGRAM)
     Route: 048
     Dates: start: 20190713, end: 2019
  2. EPIDIOLEX [Suspect]
     Active Substance: CANNABIDIOL
     Dosage: UNK, UP IN DOSING
     Route: 048
     Dates: start: 2019, end: 201910
  3. EPIDIOLEX [Suspect]
     Active Substance: CANNABIDIOL
     Dosage: 700 MILLIGRAM, BID (APPROXIMATELY 7ML)
     Route: 048
     Dates: start: 201910

REACTIONS (6)
  - Seizure [Unknown]
  - Seizure [Unknown]
  - Stomatitis [Recovered/Resolved]
  - Wrong technique in product usage process [Unknown]
  - Seizure [Unknown]
  - Seizure [Unknown]

NARRATIVE: CASE EVENT DATE: 2019
